FAERS Safety Report 6152045-1 (Version None)
Quarter: 2009Q2

REPORT INFORMATION
  Report Type: 
  Country: None (occurrence: None)
  Receive Date: 20090410
  Receipt Date: 20090409
  Transmission Date: 20091009
  Serious: Yes (Life-Threatening, Hospitalization)
  Sender: FDA-Public Use
  Company Number: FR-BRISTOL-MYERS SQUIBB COMPANY-14218663

PATIENT
  Age: 38 Year
  Sex: Male
  Weight: 75 kg

DRUGS (2)
  1. SUSTIVA [Suspect]
     Indication: HIV INFECTION
     Route: 048
     Dates: start: 20071212, end: 20080604
  2. TRUVADA [Suspect]
     Indication: HIV INFECTION
     Dosage: EMTRICITABINE 200 MG,TENOFOVIR DISOPROXIL FUMARATE 245 MG.
     Route: 048
     Dates: start: 20071212, end: 20080611

REACTIONS (3)
  - CYTOLYTIC HEPATITIS [None]
  - HEPATIC NECROSIS [None]
  - HEPATOCELLULAR INJURY [None]
